FAERS Safety Report 12845489 (Version 1)
Quarter: 2016Q4

REPORT INFORMATION
  Report Type: Spontaneous
  Country: US (occurrence: US)
  Receive Date: 20161013
  Receipt Date: 20161013
  Transmission Date: 20170207
  Serious: No
  Sender: FDA-Public Use
  Company Number: US-JAZZ-2016-US-013795

PATIENT
  Sex: Male

DRUGS (25)
  1. CLONAZEPAM. [Concomitant]
     Active Substance: CLONAZEPAM
  2. METOPROLOL. [Concomitant]
     Active Substance: METOPROLOL
  3. BYSTOLIC [Concomitant]
     Active Substance: NEBIVOLOL HYDROCHLORIDE
  4. CALCITRIOL. [Concomitant]
     Active Substance: CALCITRIOL
  5. CALCIUM ACETATE. [Concomitant]
     Active Substance: CALCIUM ACETATE
  6. HYDROXYZINE HCL [Concomitant]
     Active Substance: HYDROXYZINE HYDROCHLORIDE
  7. IRBESARTAN. [Concomitant]
     Active Substance: IRBESARTAN
  8. PREDNISONE. [Concomitant]
     Active Substance: PREDNISONE
  9. ALLOPURINOL. [Concomitant]
     Active Substance: ALLOPURINOL
  10. LOSARTAN. [Concomitant]
     Active Substance: LOSARTAN
  11. NITROSTAT [Concomitant]
     Active Substance: NITROGLYCERIN
  12. ONDANSETRON [Concomitant]
     Active Substance: ONDANSETRON
  13. EPLERENONE. [Concomitant]
     Active Substance: EPLERENONE
  14. FUROSEMIDE. [Concomitant]
     Active Substance: FUROSEMIDE
  15. LORAZEPAM. [Concomitant]
     Active Substance: LORAZEPAM
  16. CLARITIN [Concomitant]
     Active Substance: LORATADINE
  17. PRAMIPEXOLE. [Concomitant]
     Active Substance: PRAMIPEXOLE
  18. AMLODIPINE [Concomitant]
     Active Substance: AMLODIPINE BESYLATE
  19. ULORIC [Concomitant]
     Active Substance: FEBUXOSTAT
  20. COMBIVENT RESPIMAT [Concomitant]
     Active Substance: ALBUTEROL SULFATE\IPRATROPIUM BROMIDE
  21. OMEPRAZOLE. [Concomitant]
     Active Substance: OMEPRAZOLE
  22. PROMETHAZINE [Concomitant]
     Active Substance: PROMETHAZINE\PROMETHAZINE HYDROCHLORIDE
  23. XYREM [Suspect]
     Active Substance: SODIUM OXYBATE
     Indication: APNOEA
     Route: 048
  24. ENALAPRIL MALEATE. [Concomitant]
     Active Substance: ENALAPRIL MALEATE
  25. ZETIA [Concomitant]
     Active Substance: EZETIMIBE

REACTIONS (1)
  - Off label use [Unknown]
